FAERS Safety Report 8726997 (Version 2)
Quarter: 2012Q4

REPORT INFORMATION
  Report Type: 
  Country: US (occurrence: US)
  Receive Date: 20120816
  Receipt Date: 20120914
  Transmission Date: 20130627
  Serious: Yes (Hospitalization)
  Sender: FDA-Public Use
  Company Number: US-GLAXOSMITHKLINE-A0932429A

PATIENT
  Sex: Female

DRUGS (1)
  1. AVANDIA [Suspect]
     Indication: DIABETES MELLITUS
     Dosage: 8MG Per day
     Route: 048
     Dates: start: 20041124, end: 20041215

REACTIONS (4)
  - Ischaemic cardiomyopathy [Unknown]
  - Sick sinus syndrome [Unknown]
  - Cardiac failure congestive [Unknown]
  - Coronary artery disease [Unknown]
